FAERS Safety Report 9916576 (Version 1)
Quarter: 2014Q1

REPORT INFORMATION
  Report Type: Spontaneous
  Country: GB (occurrence: None)
  Receive Date: 20140219
  Receipt Date: 20140219
  Transmission Date: 20141002
  Serious: Yes (Other)
  Sender: FDA-Public Use
  Company Number: GB-DEXPHARM-20140040

PATIENT
  Age: 32 Year
  Sex: Female

DRUGS (4)
  1. OMEPRAZOLE (OMEPRAZOLE) [Suspect]
     Dates: start: 20140117
  2. CERZETTE [Concomitant]
  3. CETIRIZINE [Concomitant]
  4. RANITIDINE [Concomitant]

REACTIONS (1)
  - Jaundice [None]
